FAERS Safety Report 21117281 (Version 1)
Quarter: 2022Q3

REPORT INFORMATION
  Report Type: Spontaneous
  Country: IT (occurrence: IT)
  Receive Date: 20220722
  Receipt Date: 20220722
  Transmission Date: 20221027
  Serious: Yes (Other)
  Sender: FDA-Public Use
  Company Number: None

PATIENT
  Age: 67 Year
  Sex: Male
  Weight: 79 kg

DRUGS (5)
  1. RIFATER [Suspect]
     Active Substance: ISONIAZID\PYRAZINAMIDE\RIFAMPIN
     Indication: Tuberculosis
     Dosage: RIFATER 120/50/300 MG, 6 TABLETS/DAY
     Route: 048
     Dates: start: 20220530, end: 20220613
  2. RIFADIN [Suspect]
     Active Substance: RIFAMPIN
     Indication: Tuberculosis
     Dosage: RIFADIN 300 MG, 1 TABLET/DAY
     Route: 048
     Dates: start: 20220530, end: 20220613
  3. PYRIDOXINE HYDROCHLORIDE [Suspect]
     Active Substance: PYRIDOXINE HYDROCHLORIDE
     Indication: Tuberculosis
     Dosage: BENADON 300 MG, 2 TABLETS/WEEK
     Route: 048
     Dates: start: 20220530, end: 20220613
  4. ETAPIAM [Suspect]
     Active Substance: ETHAMBUTOL HYDROCHLORIDE
     Indication: Tuberculosis
     Dosage: ETAPIAM 400 MG, 1 TABLET/4 TIMES A DAY
     Route: 048
     Dates: start: 20220530, end: 20220613
  5. CHOLECALCIFEROL [Concomitant]
     Active Substance: CHOLECALCIFEROL
     Dosage: 25000 IU
     Route: 048

REACTIONS (1)
  - Hepatotoxicity [Not Recovered/Not Resolved]

NARRATIVE: CASE EVENT DATE: 20220613
